FAERS Safety Report 17090885 (Version 1)
Quarter: 2019Q4

REPORT INFORMATION
  Report Type: Spontaneous
  Country: CA (occurrence: CA)
  Receive Date: 20191129
  Receipt Date: 20191129
  Transmission Date: 20200122
  Serious: Yes (Other)
  Sender: FDA-Public Use
  Company Number: CA-REGENERON PHARMACEUTICALS, INC.-2019-69653

PATIENT

DRUGS (1)
  1. EYLEA [Suspect]
     Active Substance: AFLIBERCEPT
     Indication: NEOVASCULAR AGE-RELATED MACULAR DEGENERATION
     Dosage: 1 DF, ONCE, LAST DOSE PRIOR TO EVENT
     Dates: start: 20191119, end: 20191119

REACTIONS (4)
  - Vitreous floaters [Unknown]
  - Visual impairment [Recovered/Resolved]
  - Anterior chamber cell [Unknown]
  - Blindness [Unknown]

NARRATIVE: CASE EVENT DATE: 20191119
